FAERS Safety Report 24915696 (Version 1)
Quarter: 2025Q1

REPORT INFORMATION
  Report Type: Report from Study
  Country: US (occurrence: US)
  Receive Date: 20250203
  Receipt Date: 20250203
  Transmission Date: 20250408
  Serious: Yes (Other)
  Sender: ABBVIE
  Company Number: US-ABBVIE-6094872

PATIENT
  Age: 62 Year
  Sex: Male
  Weight: 72.574 kg

DRUGS (18)
  1. HUMIRA [Suspect]
     Active Substance: ADALIMUMAB
     Indication: Psoriatic arthropathy
     Dosage: CITRATE FREE?FORM STRENGTH: 40 MILLIGRAM
     Route: 058
     Dates: start: 2014, end: 2018
  2. HUMIRA [Suspect]
     Active Substance: ADALIMUMAB
     Indication: Rheumatoid arthritis
  3. LANSOPRAZOLE [Concomitant]
     Active Substance: LANSOPRAZOLE
     Indication: Gastrooesophageal reflux disease
  4. LEFLUNOMIDE [Concomitant]
     Active Substance: LEFLUNOMIDE
     Indication: Psoriatic arthropathy
  5. FOLIC ACID [Concomitant]
     Active Substance: FOLIC ACID
     Indication: Psoriatic arthropathy
  6. ORPHENADRINE [Concomitant]
     Active Substance: ORPHENADRINE
     Indication: Muscle spasms
  7. TAMSULOSIN [Concomitant]
     Active Substance: TAMSULOSIN
     Indication: Urinary tract disorder
  8. PROPRANOLOL [Concomitant]
     Active Substance: PROPRANOLOL HYDROCHLORIDE
     Indication: Tremor
  9. OXYCODONE [Concomitant]
     Active Substance: OXYCODONE
     Indication: Pain
  10. DULOXETINE [Concomitant]
     Active Substance: DULOXETINE
     Indication: Post-traumatic stress disorder
  11. CELEBREX [Concomitant]
     Active Substance: CELECOXIB
     Indication: Pain
  12. POTASSIUM [Concomitant]
     Active Substance: POTASSIUM
     Indication: Product used for unknown indication
  13. MYRBETRIQ [Concomitant]
     Active Substance: MIRABEGRON
     Indication: Urinary tract disorder
  14. TYLENOL [Concomitant]
     Active Substance: ACETAMINOPHEN
     Indication: Product used for unknown indication
  15. MAGNESIUM [Concomitant]
     Active Substance: MAGNESIUM
     Indication: Product used for unknown indication
  16. CLARITIN [Concomitant]
     Active Substance: LORATADINE
     Indication: Seasonal allergy
  17. GABAPENTIN AN [Concomitant]
     Indication: Pain
  18. ALBUTEROL [Concomitant]
     Active Substance: ALBUTEROL
     Indication: Asthma

REACTIONS (7)
  - Foot deformity [Not Recovered/Not Resolved]
  - Tendon rupture [Recovered/Resolved]
  - Blood triglycerides increased [Not Recovered/Not Resolved]
  - Synovial cyst [Recovered/Resolved]
  - Post procedural infection [Recovered/Resolved]
  - Meniscus injury [Recovered/Resolved]
  - Rotator cuff syndrome [Recovered/Resolved]

NARRATIVE: CASE EVENT DATE: 20200101
